FAERS Safety Report 6425923-3 (Version None)
Quarter: 2009Q4

REPORT INFORMATION
  Report Type: 
  Country: None (occurrence: None)
  Receive Date: 20091103
  Receipt Date: 20091103
  Transmission Date: 20100525
  Serious: No
  Sender: FDA-Public Use
  Company Number: None

PATIENT
  Age: 64 Year
  Sex: Male

DRUGS (1)
  1. RASAGILINE [Suspect]
     Dosage: PO
     Route: 048
     Dates: start: 20080422, end: 20080606

REACTIONS (1)
  - TARDIVE DYSKINESIA [None]
